FAERS Safety Report 10583484 (Version 2)
Quarter: 2015Q3

REPORT INFORMATION
  Report Type: Report from Study
  Country: US (occurrence: US)
  Receive Date: 20141114
  Receipt Date: 20150707
  Transmission Date: 20151125
  Serious: Yes (Other)
  Sender: FDA-Public Use
  Company Number: US-SA-2014SA155659

PATIENT
  Age: 55 Year
  Sex: Male

DRUGS (1)
  1. CEREZYME [Suspect]
     Active Substance: IMIGLUCERASE
     Indication: GAUCHER^S DISEASE TYPE I
     Dosage: EVERY OTHER
     Route: 042
     Dates: start: 19950420

REACTIONS (2)
  - Aortic aneurysm [Not Recovered/Not Resolved]
  - Parkinson^s disease [Not Recovered/Not Resolved]
